FAERS Safety Report 6195716-3 (Version None)
Quarter: 2009Q2

REPORT INFORMATION
  Report Type: 
  Country: None (occurrence: None)
  Receive Date: 20090520
  Receipt Date: 20080522
  Transmission Date: 20091009
  Serious: Yes (Other)
  Sender: FDA-Public Use
  Company Number: US-ASTRAZENECA-2006UW22576

PATIENT
  Age: 643 Month
  Sex: Male

DRUGS (16)
  1. SEROQUEL [Suspect]
     Indication: ANXIETY
     Route: 048
     Dates: start: 20040127
  2. SEROQUEL [Suspect]
     Indication: DEPRESSION
     Route: 048
     Dates: start: 20040127
  3. SEROQUEL [Suspect]
     Indication: BIPOLAR DISORDER
     Route: 048
     Dates: start: 20040127
  4. SEROQUEL [Suspect]
     Route: 048
     Dates: start: 20041114
  5. SEROQUEL [Suspect]
     Route: 048
     Dates: start: 20041114
  6. SEROQUEL [Suspect]
     Route: 048
     Dates: start: 20041114
  7. PROZAC [Concomitant]
     Route: 065
  8. ADVAIR HFA [Concomitant]
     Route: 065
  9. ALBUTEROL [Concomitant]
     Route: 055
  10. XANAX [Concomitant]
     Route: 065
  11. PREDNISONE [Concomitant]
     Dosage: 5-60 MG
     Route: 048
  12. VALIUM [Concomitant]
     Indication: ANXIETY
     Route: 048
  13. ATROVENT [Concomitant]
     Route: 065
  14. DARVOCET [Concomitant]
     Route: 065
  15. FLUDROCORTISONE [Concomitant]
     Route: 048
  16. HUMULIN R [Concomitant]
     Route: 065

REACTIONS (5)
  - ADRENAL CARCINOMA [None]
  - ANXIETY [None]
  - ASTHMA [None]
  - DIABETES MELLITUS [None]
  - INCISION SITE CELLULITIS [None]
